FAERS Safety Report 5213940-0 (Version None)
Quarter: 2007Q1

REPORT INFORMATION
  Report Type: 
  Country: None (occurrence: None)
  Receive Date: 20070117
  Receipt Date: 20070108
  Transmission Date: 20070707
  Serious: Yes (Other)
  Sender: FDA-Public Use
  Company Number: S07-UKI-00112-01

PATIENT
  Age: 41 Year
  Sex: Male

DRUGS (4)
  1. CAMPRAL [Suspect]
     Indication: ALCOHOLISM
     Dosage: 666 MG QD; PO
     Route: 048
     Dates: start: 20061127, end: 20061130
  2. DISULFIRAM [Suspect]
     Indication: ALCOHOLISM
     Dosage: 200 MG QD PO
     Route: 048
     Dates: start: 20061127, end: 20061130
  3. THIAMINE [Concomitant]
  4. VITAMIN B NOS [Concomitant]

REACTIONS (1)
  - DERMATITIS BULLOUS [None]
